FAERS Safety Report 25621228 (Version 2)
Quarter: 2025Q3

REPORT INFORMATION
  Report Type: Spontaneous
  Country: US (occurrence: US)
  Receive Date: 20250730
  Receipt Date: 20250910
  Transmission Date: 20251020
  Serious: No
  Sender: JOHNSON AND JOHNSON
  Company Number: US-JNJFOC-20250732294

PATIENT
  Age: 67 Year
  Sex: Female

DRUGS (1)
  1. TREMFYA [Suspect]
     Active Substance: GUSELKUMAB
     Indication: Product used for unknown indication
     Route: 065

REACTIONS (4)
  - Product dose omission issue [Unknown]
  - Product leakage [Unknown]
  - Injection site haemorrhage [Unknown]
  - Needle issue [Unknown]

NARRATIVE: CASE EVENT DATE: 20250725
